FAERS Safety Report 22624924 (Version 1)
Quarter: 2023Q2

REPORT INFORMATION
  Report Type: Spontaneous
  Country: US (occurrence: US)
  Receive Date: 20230621
  Receipt Date: 20230621
  Transmission Date: 20230721
  Serious: No
  Sender: FDA-Public Use
  Company Number: US-BAYER-2023A086412

PATIENT
  Sex: Male

DRUGS (2)
  1. NUBEQA [Suspect]
     Active Substance: DAROLUTAMIDE
     Dosage: UNK
     Dates: start: 20230217
  2. NUBEQA [Suspect]
     Active Substance: DAROLUTAMIDE
     Dosage: UNK
     Dates: start: 20230503

REACTIONS (3)
  - Dizziness [None]
  - Streptococcal infection [None]
  - Escherichia infection [None]

NARRATIVE: CASE EVENT DATE: 20230501
